FAERS Safety Report 4975147-1 (Version None)
Quarter: 2006Q2

REPORT INFORMATION
  Report Type: 
  Country: None (occurrence: None)
  Receive Date: 20060411
  Receipt Date: 20060328
  Transmission Date: 20061013
  Serious: Yes (Hospitalization)
  Sender: FDA-Public Use
  Company Number: 2006P1000146

PATIENT
  Age: 64 Year
  Weight: 65 kg

DRUGS (3)
  1. RETEPLASE (RETEPLASE) [Suspect]
     Indication: ACUTE MYOCARDIAL INFARCTION
     Dosage: 5 IU X1 IVB ; 5 IU X1 IVB
     Route: 040
     Dates: start: 20041115
  2. REOPRO [Suspect]
     Indication: ACUTE MYOCARDIAL INFARCTION
     Dosage: 8.1 ML X1 IVB ; 4.0 ML QH IVB
     Route: 040
     Dates: start: 20041115, end: 20041115
  3. HEPARIN [Concomitant]

REACTIONS (4)
  - CORONARY ARTERY OCCLUSION [None]
  - CORONARY ARTERY STENOSIS [None]
  - EJECTION FRACTION DECREASED [None]
  - HEART RATE DECREASED [None]
